FAERS Safety Report 9859922 (Version 1)
Quarter: 2014Q1

REPORT INFORMATION
  Report Type: Spontaneous
  Country: NO (occurrence: NO)
  Receive Date: 20140131
  Receipt Date: 20140131
  Transmission Date: 20141002
  Serious: Yes (Other)
  Sender: FDA-Public Use
  Company Number: NO-PFIZER INC-2014027725

PATIENT
  Sex: 0

DRUGS (8)
  1. CYTARABINE [Suspect]
     Dosage: UNK
  2. DOXORUBICIN HCL [Suspect]
     Dosage: UNK
  3. METHOTREXATE SODIUM [Suspect]
     Dosage: UNK
  4. VINCRISTINE SULFATE [Suspect]
     Dosage: UNK
  5. CYCLOPHOSPHAMIDE [Suspect]
     Dosage: UNK
  6. ETOPOSIDE [Suspect]
     Dosage: UNK
  7. MABTHERA [Suspect]
     Dosage: UNK
  8. PREDNISOLONE [Suspect]
     Dosage: UNK

REACTIONS (1)
  - Metastasis [Unknown]
